FAERS Safety Report 7270992-4 (Version None)
Quarter: 2011Q1

REPORT INFORMATION
  Report Type: 
  Country: None (occurrence: None)
  Receive Date: 20110202
  Receipt Date: 20110124
  Transmission Date: 20110831
  Serious: Yes (Other)
  Sender: FDA-Public Use
  Company Number: BR-ASTRAZENECA-2011SE04546

PATIENT
  Age: 69 Year
  Sex: Female
  Weight: 73 kg

DRUGS (2)
  1. PURAN T4 [Concomitant]
     Indication: HYPERTENSION
     Route: 048
     Dates: start: 19950101
  2. ATACAND [Suspect]
     Indication: HYPERTENSION
     Route: 048
     Dates: start: 20000101, end: 20110101

REACTIONS (5)
  - BLOOD PRESSURE INCREASED [None]
  - BACK PAIN [None]
  - CEREBROVASCULAR ACCIDENT [None]
  - BLOOD PRESSURE FLUCTUATION [None]
  - DRUG INEFFECTIVE [None]
